FAERS Safety Report 9571315 (Version 1)
Quarter: 2013Q3

REPORT INFORMATION
  Report Type: Spontaneous
  Country: US (occurrence: None)
  Receive Date: 20130927
  Receipt Date: 20130927
  Transmission Date: 20140515
  Serious: No
  Sender: FDA-Public Use
  Company Number: None

PATIENT
  Age: 66 Year
  Sex: Male
  Weight: 95.26 kg

DRUGS (1)
  1. DOXEPIN [Suspect]
     Indication: SLEEP DISORDER
     Dosage: 1/2 CAPSULE, AT BEDTIME, TAKEN BY MOUTH
     Route: 048
     Dates: start: 20130924, end: 20130925

REACTIONS (10)
  - Vision blurred [None]
  - Pollakiuria [None]
  - Anger [None]
  - Tension [None]
  - Urticaria [None]
  - Nightmare [None]
  - Dizziness [None]
  - Dry mouth [None]
  - Feeling abnormal [None]
  - Impaired driving ability [None]
